FAERS Safety Report 9528738 (Version 1)
Quarter: 2013Q3

REPORT INFORMATION
  Report Type: Spontaneous
  Country: JP (occurrence: JP)
  Receive Date: 20130917
  Receipt Date: 20130917
  Transmission Date: 20140515
  Serious: Yes (Other)
  Sender: FDA-Public Use
  Company Number: JP-PURDUE-GBR-2013-0015605

PATIENT
  Age: 70 Year
  Sex: Female

DRUGS (3)
  1. OXYCODONE HCL PR TABLET [Suspect]
     Indication: CANCER PAIN
     Route: 048
  2. XELODA [Suspect]
     Indication: BREAST CANCER
     Route: 048
  3. LAPATINIB TOSILATE [Concomitant]
     Indication: CHEMOTHERAPY

REACTIONS (1)
  - Hyperkalaemia [Recovering/Resolving]
